FAERS Safety Report 18109147 (Version 1)
Quarter: 2020Q3

REPORT INFORMATION
  Report Type: Spontaneous
  Country: US (occurrence: US)
  Receive Date: 20200804
  Receipt Date: 20200804
  Transmission Date: 20201103
  Serious: No
  Sender: FDA-Public Use
  Company Number: None

PATIENT
  Age: 32 Year
  Sex: Female
  Weight: 51.75 kg

DRUGS (11)
  1. MULTI VITAMINS [Concomitant]
     Active Substance: VITAMINS
  2. PROBIOTICS [Concomitant]
     Active Substance: PROBIOTICS NOS
  3. FISH OIL [Concomitant]
     Active Substance: FISH OIL
  4. LAMICTAL [Concomitant]
     Active Substance: LAMOTRIGINE
  5. ABILIFY [Concomitant]
     Active Substance: ARIPIPRAZOLE
  6. PREDNISONE 5 MG [Suspect]
     Active Substance: PREDNISONE
     Indication: COLITIS ULCERATIVE
     Dosage: ?          QUANTITY:256 TABLET(S);?
     Route: 048
     Dates: start: 20200724, end: 20200731
  7. VIMPAT [Concomitant]
     Active Substance: LACOSAMIDE
  8. MESALAMINE. [Concomitant]
     Active Substance: MESALAMINE
  9. MERTAZAPINE [Concomitant]
     Active Substance: MIRTAZAPINE
  10. DIM [Concomitant]
  11. KEPPRA [Concomitant]
     Active Substance: LEVETIRACETAM

REACTIONS (1)
  - Seizure [None]

NARRATIVE: CASE EVENT DATE: 20200724
